FAERS Safety Report 10991133 (Version 2)
Quarter: 2015Q2

REPORT INFORMATION
  Report Type: Spontaneous
  Country: US (occurrence: US)
  Receive Date: 20150406
  Receipt Date: 20150526
  Transmission Date: 20150821
  Serious: No
  Sender: FDA-Public Use
  Company Number: US-PFIZER INC-2015113956

PATIENT
  Age: 55 Year
  Sex: Female
  Weight: 78 kg

DRUGS (1)
  1. ADVIL CONGESTION RELIEF [Suspect]
     Active Substance: IBUPROFEN\PHENYLEPHRINE HYDROCHLORIDE
     Indication: SINUS DISORDER
     Dosage: 200 MG, UNK
     Route: 048
     Dates: start: 20150327

REACTIONS (1)
  - Drug ineffective [Not Recovered/Not Resolved]

NARRATIVE: CASE EVENT DATE: 20150327
